FAERS Safety Report 4413819-8 (Version None)
Quarter: 2004Q3

REPORT INFORMATION
  Report Type: 
  Country: None (occurrence: None)
  Receive Date: 20040803
  Receipt Date: 20040607
  Transmission Date: 20050211
  Serious: Yes (Other)
  Sender: FDA-Public Use
  Company Number: PHEH2004US06368

PATIENT
  Age: 43 Year
  Sex: Female
  Weight: 56 kg

DRUGS (1)
  1. LAMISIL [Suspect]
     Indication: NAIL TINEA
     Dosage: 250 MG, QD
     Route: 048
     Dates: start: 20040415, end: 20040428

REACTIONS (11)
  - ANXIETY [None]
  - ARTHRALGIA [None]
  - DRUG HYPERSENSITIVITY [None]
  - DYSPHAGIA [None]
  - ERYTHEMA [None]
  - HYPERSENSITIVITY [None]
  - INSOMNIA [None]
  - OEDEMA PERIPHERAL [None]
  - PERIORBITAL OEDEMA [None]
  - PRURITUS [None]
  - URTICARIA [None]
